FAERS Safety Report 8886019 (Version 1)
Quarter: 2012Q4

REPORT INFORMATION
  Report Type: 
  Country: US (occurrence: US)
  Receive Date: 20121105
  Receipt Date: 20121105
  Transmission Date: 20130627
  Serious: No
  Sender: FDA-Public Use
  Company Number: US-PFIZER INC-2012274342

PATIENT
  Age: 28 Year
  Sex: Female
  Weight: 63.49 kg

DRUGS (4)
  1. EFFEXOR XR [Suspect]
     Indication: DEPRESSION
     Dosage: UNK
     Dates: start: 201101
  2. CELEXA [Suspect]
     Indication: DEPRESSION
     Dosage: UNK
     Dates: start: 201009
  3. ABILIFY [Suspect]
     Indication: DEPRESSION
     Dosage: UNK
     Dates: start: 201009
  4. WELLBUTRIN [Suspect]
     Indication: DEPRESSION
     Dosage: UNK
     Dates: start: 201009

REACTIONS (1)
  - Drug ineffective [Unknown]
